FAERS Safety Report 22651363 (Version 2)
Quarter: 2024Q4

REPORT INFORMATION
  Report Type: Spontaneous
  Country: IN (occurrence: IN)
  Receive Date: 20230628
  Receipt Date: 20241119
  Transmission Date: 20250115
  Serious: Yes (Hospitalization)
  Sender: PFIZER
  Company Number: IN-PFIZER INC-PV202300112321

PATIENT
  Age: 49 Year
  Sex: Male

DRUGS (2)
  1. CRIZOTINIB [Suspect]
     Active Substance: CRIZOTINIB
     Indication: Non-small cell lung cancer
     Dosage: 250 MG BD
     Route: 048
     Dates: start: 20220615
  2. CRIZOTINIB [Suspect]
     Active Substance: CRIZOTINIB
     Dosage: 250 MG
     Route: 048
     Dates: start: 202304, end: 202305

REACTIONS (2)
  - Pulmonary tuberculosis [Recovering/Resolving]
  - Dyspnoea [Recovering/Resolving]
